FAERS Safety Report 5880393-9 (Version None)
Quarter: 2008Q3

REPORT INFORMATION
  Report Type: 
  Country: None (occurrence: None)
  Receive Date: 20080912
  Receipt Date: 20080715
  Transmission Date: 20090109
  Serious: No
  Sender: FDA-Public Use
  Company Number: US-ABBOTT-07P-163-0415179-00

PATIENT
  Sex: Female
  Weight: 50 kg

DRUGS (3)
  1. HUMIRA [Suspect]
     Indication: RHEUMATOID ARTHRITIS
     Route: 058
     Dates: start: 20070501, end: 20070801
  2. UNKNOWN BLOOD PRESURE MEDICINE [Concomitant]
     Indication: DRUG USE FOR UNKNOWN INDICATION
  3. ALBUTEROL SPIROS [Concomitant]
     Indication: ASTHMA

REACTIONS (5)
  - ARTHRALGIA [None]
  - ASTHMA [None]
  - BLOOD PRESSURE INCREASED [None]
  - DYSPEPSIA [None]
  - JOINT SWELLING [None]
